FAERS Safety Report 6840303-4 (Version None)
Quarter: 2010Q3

REPORT INFORMATION
  Report Type: 
  Country: None (occurrence: None)
  Receive Date: 20100714
  Receipt Date: 20100706
  Transmission Date: 20110219
  Serious: Yes (Hospitalization, Disabling, Other)
  Sender: FDA-Public Use
  Company Number: US-MERCK-0807USA05261

PATIENT
  Age: 59 Year
  Sex: Female
  Weight: 60 kg

DRUGS (4)
  1. FOSAMAX [Suspect]
     Indication: OSTEOPOROSIS
     Route: 048
     Dates: start: 20010101, end: 20080101
  2. FOSAMAX [Suspect]
     Route: 048
     Dates: start: 20000901, end: 20001001
  3. FOSAMAX [Suspect]
     Indication: OSTEOPENIA
     Route: 048
     Dates: start: 20010101, end: 20080101
  4. FOSAMAX [Suspect]
     Route: 048
     Dates: start: 20000901, end: 20001001

REACTIONS (29)
  - ACUTE SINUSITIS [None]
  - APPENDIX DISORDER [None]
  - ARTHROPATHY [None]
  - BONE DENSITY DECREASED [None]
  - BURNING SENSATION [None]
  - CYST [None]
  - DENTAL CARIES [None]
  - DEVICE BREAKAGE [None]
  - DNA ANTIBODY POSITIVE [None]
  - DRUG HYPERSENSITIVITY [None]
  - ECZEMA [None]
  - FATIGUE [None]
  - FIBROMYALGIA [None]
  - HYPERTENSION [None]
  - HYPERTENSIVE CRISIS [None]
  - JAUNDICE [None]
  - JAW DISORDER [None]
  - MORPHOEA [None]
  - ORAL TORUS [None]
  - OSTEONECROSIS [None]
  - PAIN [None]
  - RENAL DISORDER [None]
  - SKIN DISORDER [None]
  - STEROID THERAPY [None]
  - SYSTEMIC LUPUS ERYTHEMATOSUS [None]
  - TEMPOROMANDIBULAR JOINT SYNDROME [None]
  - TONSILLAR DISORDER [None]
  - TOOTH FRACTURE [None]
  - TOOTH INFECTION [None]
